FAERS Safety Report 16885894 (Version 7)
Quarter: 2020Q3

REPORT INFORMATION
  Report Type: Spontaneous
  Country: US (occurrence: US)
  Receive Date: 20191004
  Receipt Date: 20200804
  Transmission Date: 20201102
  Serious: Yes (Hospitalization, Other)
  Sender: FDA-Public Use
  Company Number: US-ACTELION-A-NJ2019-194783

PATIENT
  Age: 69 Year
  Sex: Female
  Weight: 59.86 kg

DRUGS (2)
  1. OPSUMIT [Suspect]
     Active Substance: MACITENTAN
     Indication: PULMONARY ARTERIAL HYPERTENSION
     Dosage: 10 MG, QD
     Route: 048
     Dates: start: 20190513
  2. NP THYROID [Concomitant]
     Active Substance: LEVOTHYROXINE\LIOTHYRONINE

REACTIONS (13)
  - Pancreatitis [Unknown]
  - Influenza [Unknown]
  - Fluid retention [Recovered/Resolved]
  - Tooth infection [Unknown]
  - Oedema [Unknown]
  - Dyspnoea [Unknown]
  - Palpitations [Unknown]
  - Rhinorrhoea [Unknown]
  - Biopsy [Unknown]
  - Red blood cell count decreased [Unknown]
  - Paranasal sinus discomfort [Unknown]
  - Dehydration [Unknown]
  - Unevaluable event [Unknown]

NARRATIVE: CASE EVENT DATE: 202006
